FAERS Safety Report 11662367 (Version 1)
Quarter: 2015Q4

REPORT INFORMATION
  Report Type: Report from Study
  Country: CN (occurrence: CN)
  Receive Date: 20151027
  Receipt Date: 20151027
  Transmission Date: 20160304
  Serious: Yes (Other)
  Sender: FDA-Public Use
  Company Number: CN-ROCHE-1648367

PATIENT
  Sex: Female

DRUGS (2)
  1. CAPECITABINE. [Suspect]
     Active Substance: CAPECITABINE
     Indication: BREAST CANCER METASTATIC
     Dosage: SPECIFICATION : 0.5 G?D1-14, ?EACH COURSE OF TREATMENT BEING 3 WEEKS
     Route: 048
  2. GEMCITABINE [Suspect]
     Active Substance: GEMCITABINE\GEMCITABINE HYDROCHLORIDE
     Indication: BREAST CANCER METASTATIC
     Dosage: DAY 1,8?SPECIFICATION:1.0 G/0.2 G
     Route: 041

REACTIONS (3)
  - Gastrointestinal toxicity [Unknown]
  - Bone marrow failure [Unknown]
  - Hypersensitivity [Unknown]
